FAERS Safety Report 7720213-0 (Version None)
Quarter: 2011Q3

REPORT INFORMATION
  Report Type: 
  Country: None (occurrence: None)
  Receive Date: 20110825
  Receipt Date: 20110622
  Transmission Date: 20111222
  Serious: Yes (Hospitalization, Other)
  Sender: FDA-Public Use
  Company Number: 2128643-2011-00033

PATIENT
  Sex: Male

DRUGS (1)
  1. CVS ALCOHOL PREP SWABS [Suspect]
     Dosage: ONE SWAB PER DAY

REACTIONS (1)
  - LOCALISED INFECTION [None]
